FAERS Safety Report 9517608 (Version 1)
Quarter: 2013Q3

REPORT INFORMATION
  Report Type: Report from Study
  Country: US (occurrence: US)
  Receive Date: 20130912
  Receipt Date: 20130912
  Transmission Date: 20140515
  Serious: Yes (Death)
  Sender: FDA-Public Use
  Company Number: US-ROCHE-1274471

PATIENT
  Sex: Male

DRUGS (2)
  1. CELLCEPT [Suspect]
     Indication: COMPLICATIONS OF TRANSPLANTED KIDNEY
     Route: 048
  2. CELLCEPT [Suspect]
     Indication: RENAL TRANSPLANT

REACTIONS (1)
  - Death [Fatal]
